FAERS Safety Report 9304995 (Version 2)
Quarter: 2013Q3

REPORT INFORMATION
  Report Type: Spontaneous
  Country: IT (occurrence: IT)
  Receive Date: 20130523
  Receipt Date: 20130807
  Transmission Date: 20140515
  Serious: Yes (Other)
  Sender: FDA-Public Use
  Company Number: IT-JNJFOC-20130510794

PATIENT
  Age: 56 Year
  Sex: Male

DRUGS (1)
  1. TOPAMAX [Suspect]
     Indication: PRODUCT USED FOR UNKNOWN INDICATION
     Route: 048
     Dates: start: 20130515, end: 20130515

REACTIONS (2)
  - Self injurious behaviour [Unknown]
  - Overdose [Unknown]
